FAERS Safety Report 13044640 (Version 1)
Quarter: 2016Q4

REPORT INFORMATION
  Report Type: Spontaneous
  Country: US (occurrence: US)
  Receive Date: 20161220
  Receipt Date: 20161220
  Transmission Date: 20170207
  Serious: No
  Sender: FDA-Public Use
  Company Number: US-ROCHE-1024043

PATIENT
  Sex: Female
  Weight: 69.6 kg

DRUGS (21)
  1. POTASSIUM CHLORIDE. [Concomitant]
     Active Substance: POTASSIUM CHLORIDE
     Route: 048
  2. VITAMIN E [Concomitant]
     Active Substance: .ALPHA.-TOCOPHEROL
  3. ZELBORAF [Suspect]
     Active Substance: VEMURAFENIB
     Route: 048
     Dates: start: 20111206
  4. ZOFRAN [Concomitant]
     Active Substance: ONDANSETRON HYDROCHLORIDE
  5. ZELBORAF [Suspect]
     Active Substance: VEMURAFENIB
     Indication: MALIGNANT MELANOMA
     Route: 048
     Dates: start: 20110612
  6. VITAMIN C [Concomitant]
     Active Substance: ASCORBIC ACID
  7. PROCHLORPERAZINE. [Concomitant]
     Active Substance: PROCHLORPERAZINE
     Route: 048
  8. OXYCODONE [Concomitant]
     Active Substance: OXYCODONE
     Route: 048
  9. LEVOTHROID [Concomitant]
     Active Substance: LEVOTHYROXINE SODIUM
  10. FOLIC ACID. [Concomitant]
     Active Substance: FOLIC ACID
     Route: 065
  11. FLUOXETINE [Concomitant]
     Active Substance: FLUOXETINE HYDROCHLORIDE
     Route: 048
  12. MOBIC [Concomitant]
     Active Substance: MELOXICAM
     Route: 065
  13. OMEGA 3-6-9 [Concomitant]
     Active Substance: FISH OIL
  14. OXYCONTIN [Concomitant]
     Active Substance: OXYCODONE HYDROCHLORIDE
     Route: 065
  15. GABAPENTINA [Concomitant]
     Active Substance: GABAPENTIN
     Route: 048
  16. COENZYME Q-10 [Concomitant]
     Route: 048
  17. CLARITIN [Concomitant]
     Active Substance: LORATADINE
  18. CITRACAL [Concomitant]
     Active Substance: CALCIUM CITRATE
  19. ZINC [Concomitant]
     Active Substance: ZINC\ZINC CHLORIDE
     Route: 065
  20. ZANTAC [Concomitant]
     Active Substance: RANITIDINE HYDROCHLORIDE
     Route: 065
  21. E-400 [Concomitant]

REACTIONS (3)
  - Sunburn [Unknown]
  - Alopecia [Unknown]
  - Mass [Unknown]
